FAERS Safety Report 7585884-0 (Version None)
Quarter: 2011Q3

REPORT INFORMATION
  Report Type: 
  Country: None (occurrence: None)
  Receive Date: 20110701
  Receipt Date: 20110620
  Transmission Date: 20111222
  Serious: Yes (Hospitalization)
  Sender: FDA-Public Use
  Company Number: JP-ELI_LILLY_AND_COMPANY-JP201106006960

PATIENT
  Sex: Female
  Weight: 51.8 kg

DRUGS (5)
  1. GEMCITABINE HYDROCHLORIDE [Suspect]
     Indication: PANCREATIC CARCINOMA RECURRENT
     Dosage: 1800 MG, BIWEEKLY
     Route: 042
     Dates: start: 20080109, end: 20080208
  2. GASTER D                                /JPN/ [Concomitant]
     Indication: GASTRITIS
     Dosage: 20 MG, BID
     Route: 048
  3. TS 1 (DRUG CODE 015935.01.001) [Suspect]
     Indication: PANCREATIC CARCINOMA RECURRENT
     Dosage: 120 MG, OTHER
     Route: 048
     Dates: start: 20080109, end: 20080131
  4. NEO-MERCAZOLE TAB [Concomitant]
     Indication: THYROID DISORDER
     Dosage: 5 MG, QD
     Route: 048
  5. MAGMITT [Concomitant]
     Indication: PROPHYLAXIS
     Dosage: 330 MG, TID
     Route: 048

REACTIONS (1)
  - MYOCARDIAL INFARCTION [None]
